FAERS Safety Report 5034218-4 (Version None)
Quarter: 2006Q2

REPORT INFORMATION
  Report Type: 
  Country: None (occurrence: None)
  Receive Date: 20060626
  Receipt Date: 20060615
  Transmission Date: 20061013
  Serious: Yes (Other)
  Sender: FDA-Public Use
  Company Number: FR-GLAXOSMITHKLINE-B0428482A

PATIENT
  Age: 64 Year
  Sex: Female

DRUGS (3)
  1. SERETIDE DISKUS [Suspect]
     Dosage: 4PUFF TWICE PER DAY
     Route: 055
     Dates: end: 20060601
  2. TAHOR [Concomitant]
  3. SOLUPRED [Concomitant]
     Indication: SUPERINFECTION LUNG
     Route: 048
     Dates: start: 20051201

REACTIONS (10)
  - AMYOTROPHY [None]
  - CAPILLARY FRAGILITY [None]
  - DRY SKIN [None]
  - ECCHYMOSIS [None]
  - HAEMATOMA [None]
  - IMPAIRED HEALING [None]
  - PURPURA [None]
  - RHINITIS [None]
  - SKIN ATROPHY [None]
  - SLEEP DISORDER [None]
